FAERS Safety Report 10258197 (Version 1)
Quarter: 2014Q2

REPORT INFORMATION
  Report Type: Spontaneous
  Country: US (occurrence: US)
  Receive Date: 20140625
  Receipt Date: 20140625
  Transmission Date: 20141212
  Serious: Yes (Other)
  Sender: FDA-Public Use
  Company Number: US-BAYER-2014-091043

PATIENT
  Age: 13 Year
  Sex: Female
  Weight: 64 kg

DRUGS (2)
  1. ALEVE TABLET [Suspect]
     Dosage: UNK DF, UNK
     Route: 048
  2. ALEVE TABLET [Suspect]
     Dosage: 6 DF, UNK
     Route: 048
     Dates: start: 20140615

REACTIONS (5)
  - Suicidal ideation [Unknown]
  - Dizziness [Recovered/Resolved]
  - Palpitations [Recovered/Resolved]
  - Extra dose administered [None]
  - Intentional product misuse [None]
